FAERS Safety Report 6107561-5 (Version None)
Quarter: 2009Q1

REPORT INFORMATION
  Report Type: 
  Country: None (occurrence: None)
  Receive Date: 20090309
  Receipt Date: 20090302
  Transmission Date: 20090719
  Serious: Yes (Other)
  Sender: FDA-Public Use
  Company Number: PHEH2009US02178

PATIENT
  Sex: Female

DRUGS (2)
  1. TEGRETOL [Suspect]
     Dosage: 200 MG, Q8H
     Dates: start: 20010101
  2. NEURONTIN [Suspect]
     Dosage: 900 MG, Q8H

REACTIONS (2)
  - CONDITION AGGRAVATED [None]
  - OSTEOPENIA [None]
